FAERS Safety Report 10541662 (Version 1)
Quarter: 2014Q4

REPORT INFORMATION
  Report Type: Spontaneous
  Country: US (occurrence: US)
  Receive Date: 20141024
  Receipt Date: 20141024
  Transmission Date: 20150529
  Serious: No
  Sender: FDA-Public Use
  Company Number: US-ALLERGAN-1404551US

PATIENT
  Sex: Female

DRUGS (2)
  1. PHOSPHOLINE IODIDE [Concomitant]
     Active Substance: ECHOTHIOPHATE IODIDE
     Indication: PRODUCT USED FOR UNKNOWN INDICATION
  2. BRIMONIDINE [Suspect]
     Active Substance: BRIMONIDINE\BRIMONIDINE TARTRATE
     Indication: PRODUCT USED FOR UNKNOWN INDICATION

REACTIONS (1)
  - Drug ineffective [Unknown]
